FAERS Safety Report 7431761-5 (Version None)
Quarter: 2011Q1

REPORT INFORMATION
  Report Type: 
  Country: None (occurrence: None)
  Receive Date: 20110302
  Receipt Date: 20101130
  Transmission Date: 20110831
  Serious: No
  Sender: FDA-Public Use
  Company Number: 021120

PATIENT
  Sex: Female

DRUGS (3)
  1. CIMZIA [Suspect]
     Indication: CROHN'S DISEASE
     Dosage: SEE IMAGE SUBCUTANEOUS
     Route: 058
     Dates: start: 20101110
  2. CIMZIA [Suspect]
     Indication: CROHN'S DISEASE
     Dosage: SEE IMAGE SUBCUTANEOUS
     Route: 058
     Dates: start: 20080922
  3. CIMZIA [Suspect]
     Indication: CROHN'S DISEASE
     Dosage: SEE IMAGE SUBCUTANEOUS
     Route: 058
     Dates: start: 20101124

REACTIONS (4)
  - DIARRHOEA [None]
  - HAEMORRHOID OPERATION [None]
  - ABDOMINAL PAIN [None]
  - INCORRECT DOSE ADMINISTERED [None]
